FAERS Safety Report 5485918-3 (Version None)
Quarter: 2007Q4

REPORT INFORMATION
  Report Type: 
  Country: None (occurrence: None)
  Receive Date: 20071015
  Receipt Date: 20071001
  Transmission Date: 20080405
  Serious: Yes (Hospitalization)
  Sender: FDA-Public Use
  Company Number: FR-SHR-FR-2007-036735

PATIENT
  Age: 53 Year
  Sex: Female

DRUGS (7)
  1. FLUDARA [Suspect]
     Indication: B-CELL LYMPHOMA
     Dosage: 40 MG/KG, 1X/DAY
     Route: 042
     Dates: start: 20070814, end: 20070818
  2. RITUXAN [Suspect]
     Indication: B-CELL LYMPHOMA
     Dosage: 375 MG/M2, 1 DOSE
     Route: 042
     Dates: start: 20070814, end: 20070814
  3. ZELITREX                                /DEN/ [Concomitant]
  4. BACTRIM [Concomitant]
  5. SPECIAFOLDINE [Concomitant]
  6. COLCHICINE [Concomitant]
  7. NOLVADEX [Concomitant]
     Dosage: 20 MG, 1X/DAY
     Route: 048
     Dates: start: 20030101

REACTIONS (2)
  - VASCULAR PURPURA [None]
  - VASCULITIS [None]
